FAERS Safety Report 13573990 (Version 1)
Quarter: 2017Q2

REPORT INFORMATION
  Report Type: Spontaneous
  Country: GR (occurrence: GR)
  Receive Date: 20170523
  Receipt Date: 20170523
  Transmission Date: 20170830
  Serious: Yes (Other)
  Sender: FDA-Public Use
  Company Number: GR-TEVA-770305ISR

PATIENT
  Age: 68 Year
  Sex: Female

DRUGS (3)
  1. ALEDROLET [Suspect]
     Active Substance: ALENDRONATE SODIUM
     Route: 065
  2. VITAMIN D [Concomitant]
     Active Substance: CHOLECALCIFEROL
     Route: 065
  3. CORTICOSTEROIDS [Concomitant]
     Active Substance: CORTICOSTEROID NOS
     Route: 065

REACTIONS (4)
  - Erythema [Recovered/Resolved]
  - Disease progression [Recovered/Resolved]
  - Leukopenia [Recovered/Resolved]
  - Osteoporosis [None]
